FAERS Safety Report 7403623-0 (Version None)
Quarter: 2011Q2

REPORT INFORMATION
  Report Type: 
  Country: None (occurrence: None)
  Receive Date: 20110408
  Receipt Date: 20110328
  Transmission Date: 20111010
  Serious: Yes (Other)
  Sender: FDA-Public Use
  Company Number: PHHY2011GB25436

PATIENT
  Sex: Female

DRUGS (1)
  1. GABAPENTIN [Suspect]
     Route: 048

REACTIONS (1)
  - GASTRIC DISORDER [None]
